FAERS Safety Report 4478731-7 (Version None)
Quarter: 2004Q4

REPORT INFORMATION
  Report Type: 
  Country: None (occurrence: None)
  Receive Date: 20041019
  Receipt Date: 20041008
  Transmission Date: 20050328
  Serious: Yes (Other)
  Sender: FDA-Public Use
  Company Number: CH-BRISTOL-MYERS SQUIBB COMPANY-12726220

PATIENT
  Age: 39 Year
  Sex: Female
  Weight: 58 kg

DRUGS (7)
  1. VIDEX [Suspect]
     Indication: HIV INFECTION
     Route: 048
  2. VIREAD [Suspect]
     Indication: HIV INFECTION
     Route: 048
  3. SERETIDE [Suspect]
     Indication: CHRONIC OBSTRUCTIVE AIRWAYS DISEASE
     Route: 055
     Dates: end: 20040824
  4. KALETRA [Suspect]
     Indication: HIV INFECTION
     Route: 048
  5. TEMESTA [Concomitant]
     Indication: RESTLESSNESS
     Route: 048
  6. TEMESTA [Concomitant]
     Indication: AGITATION
     Route: 048
  7. SEROPRAM [Concomitant]
     Indication: DEPRESSION
     Route: 048

REACTIONS (1)
  - CUSHING'S SYNDROME [None]
